FAERS Safety Report 8794400 (Version 1)
Quarter: 2012Q4

REPORT INFORMATION
  Report Type: 
  Country: US (occurrence: US)
  Receive Date: 20120917
  Receipt Date: 20120917
  Transmission Date: 20130627
  Serious: Yes (Other)
  Sender: FDA-Public Use
  Company Number: PHHY2012US079128

PATIENT
  Age: 48 Year
  Sex: Male

DRUGS (1)
  1. AMPHETAMINE+DEXTROAMPHETAMINE [Suspect]
     Indication: NARCOLEPSY
     Dosage: 20 mg, daily

REACTIONS (5)
  - Parkinson^s disease [Unknown]
  - Dysgraphia [Unknown]
  - Muscle rigidity [Unknown]
  - Tremor [Unknown]
  - On and off phenomenon [Unknown]
